FAERS Safety Report 19891091 (Version 1)
Quarter: 2021Q3

REPORT INFORMATION
  Report Type: Spontaneous
  Country: BR (occurrence: BR)
  Receive Date: 20210928
  Receipt Date: 20210928
  Transmission Date: 20211014
  Serious: Yes (Hospitalization, Disabling, Other)
  Sender: FDA-Public Use
  Company Number: BR-PFIZER INC-2021538041

PATIENT
  Age: 52 Year
  Sex: Female

DRUGS (8)
  1. CRESEMBA [Suspect]
     Active Substance: ISAVUCONAZONIUM SULFATE
     Dosage: 1 DF, DAILY
     Dates: start: 20210220, end: 20210413
  2. AMIKACIN. [Suspect]
     Active Substance: AMIKACIN
     Indication: NEUTROPENIC COLITIS
     Dosage: UNK
     Dates: start: 202012, end: 202101
  3. VORICONAZOLE. [Concomitant]
     Active Substance: VORICONAZOLE
     Indication: ASPERGILLUS INFECTION
     Dosage: 600 MG, 1X/DAY
     Dates: start: 20210204, end: 20210220
  4. VORICONAZOLE. [Concomitant]
     Active Substance: VORICONAZOLE
     Indication: NEUTROPENIA
  5. MEROPENEM. [Suspect]
     Active Substance: MEROPENEM
     Indication: NEUTROPENIC COLITIS
     Dosage: UNK
     Dates: start: 202012, end: 202101
  6. CRESEMBA [Suspect]
     Active Substance: ISAVUCONAZONIUM SULFATE
     Indication: ASPERGILLUS INFECTION
     Dosage: UNK
     Route: 065
     Dates: start: 20210107, end: 20210111
  7. VANCOMYCIN [Suspect]
     Active Substance: VANCOMYCIN
     Indication: NEUTROPENIC COLITIS
     Dosage: UNK
     Dates: start: 202012, end: 202101
  8. ABELCET [Concomitant]
     Active Substance: AMPHOTERICIN B\DIMYRISTOYLPHOSPHATIDYLCHOLINE, DL-\DIMYRISTOYLPHOSPHATIDYLGLYCEROL, DL-
     Indication: ASPERGILLUS INFECTION
     Dosage: 5 MG/KG
     Dates: start: 20210111, end: 20210204

REACTIONS (7)
  - Sinusitis [Unknown]
  - Tinnitus [Not Recovered/Not Resolved]
  - Pain [Unknown]
  - Leukaemia recurrent [Unknown]
  - Deafness [Not Recovered/Not Resolved]
  - Product use issue [Unknown]
  - Off label use [Unknown]

NARRATIVE: CASE EVENT DATE: 20210316
